FAERS Safety Report 10037993 (Version 1)
Quarter: 2014Q1

REPORT INFORMATION
  Report Type: Spontaneous
  Country: CN (occurrence: None)
  Receive Date: 20140321
  Receipt Date: 20140321
  Transmission Date: 20141002
  Serious: Yes (Hospitalization)
  Sender: FDA-Public Use
  Company Number: IPC201403-000131

PATIENT
  Age: 22 Year
  Sex: Female

DRUGS (6)
  1. HYDROXYCHLOROQUINE SULFATE [Suspect]
     Dosage: 0.2, BID
  2. PREDNISONE [Suspect]
     Dosage: 50-60 MG/DAY
  3. METHYLPREDNISOLONE [Suspect]
     Dosage: 2 DOSES, 2 COURSES
  4. CYCLOSPORINE A [Suspect]
  5. DAPSONE [Suspect]
  6. MYCOPHENOLATE MOFETIL [Suspect]

REACTIONS (3)
  - Meningitis [None]
  - Listeriosis [None]
  - Diarrhoea [None]
